FAERS Safety Report 9737010 (Version 1)
Quarter: 2013Q4

REPORT INFORMATION
  Report Type: Spontaneous
  Country: US (occurrence: US)
  Receive Date: 20131206
  Receipt Date: 20131206
  Transmission Date: 20140711
  Serious: No
  Sender: FDA-Public Use
  Company Number: US-GILEAD-2009-0024004

PATIENT
  Sex: Female
  Weight: 45.36 kg

DRUGS (7)
  1. LETAIRIS [Suspect]
     Indication: PULMONARY ARTERIAL HYPERTENSION
     Route: 048
     Dates: start: 20080823
  2. SPIRONOLACTONE [Concomitant]
  3. DEPO-PROVERA [Concomitant]
  4. COUMADIN [Concomitant]
  5. REVATIO [Concomitant]
  6. ZANTAC [Concomitant]
  7. TYLENOL [Concomitant]

REACTIONS (4)
  - Chest pain [Unknown]
  - Nausea [Unknown]
  - Palpitations [Unknown]
  - Abdominal pain upper [Unknown]
